FAERS Safety Report 9059759 (Version 1)
Quarter: 2013Q1

REPORT INFORMATION
  Report Type: Spontaneous
  Country: JP (occurrence: JP)
  Receive Date: 20130211
  Receipt Date: 20130211
  Transmission Date: 20140127
  Serious: Yes (Hospitalization)
  Sender: FDA-Public Use
  Company Number: JP-MERCK-1302JPN003263

PATIENT
  Age: 71 Year
  Sex: Male

DRUGS (3)
  1. PEGINTERFERON ALFA-2B [Suspect]
     Indication: CHRONIC HEPATITIS C
     Dosage: UNK
     Route: 058
     Dates: start: 200711
  2. RIBAVIRIN [Suspect]
     Indication: CHRONIC HEPATITIS C
     Dosage: UNK
     Route: 048
     Dates: start: 200711
  3. CORTICOSTEROIDS (UNSPECIFIED) [Concomitant]
     Indication: CHRONIC HEPATITIS C
     Dosage: UNK
     Dates: start: 200711

REACTIONS (1)
  - Interstitial lung disease [Unknown]
